FAERS Safety Report 19685370 (Version 1)
Quarter: 2021Q3

REPORT INFORMATION
  Report Type: Spontaneous
  Country: US (occurrence: US)
  Receive Date: 20210811
  Receipt Date: 20210811
  Transmission Date: 20211014
  Serious: Yes (Hospitalization)
  Sender: FDA-Public Use
  Company Number: None

PATIENT
  Age: 59 Year
  Sex: Female
  Weight: 83.4 kg

DRUGS (2)
  1. CARBOPLATIN. [Suspect]
     Active Substance: CARBOPLATIN
     Dates: end: 20210802
  2. PACLITAXEL. [Suspect]
     Active Substance: PACLITAXEL
     Dates: end: 20210802

REACTIONS (7)
  - Loss of consciousness [None]
  - Nausea [None]
  - Hyperhidrosis [None]
  - Dyspnoea [None]
  - Blood pressure decreased [None]
  - Flushing [None]
  - Throat tightness [None]

NARRATIVE: CASE EVENT DATE: 20210809
